FAERS Safety Report 19223501 (Version 1)
Quarter: 2021Q2

REPORT INFORMATION
  Report Type: Spontaneous
  Country: US (occurrence: US)
  Receive Date: 20210506
  Receipt Date: 20210506
  Transmission Date: 20210717
  Serious: Yes (Life-Threatening)
  Sender: FDA-Public Use
  Company Number: None

PATIENT
  Sex: Male
  Weight: 63.5 kg

DRUGS (19)
  1. STOOL SOFTENER (DOCUSATE) [Concomitant]
     Active Substance: DOCUSATE
  2. METFORMIN [Concomitant]
     Active Substance: METFORMIN HYDROCHLORIDE
  3. VITAMIN C [Concomitant]
     Active Substance: ASCORBIC ACID
  4. FUROSEMIDE. [Concomitant]
     Active Substance: FUROSEMIDE
  5. FINASTERIDE. [Concomitant]
     Active Substance: FINASTERIDE
  6. BIOFIBER [Concomitant]
  7. ACIDOPHILUS [Concomitant]
     Active Substance: LACTOBACILLUS ACIDOPHILUS
  8. SAW PALMETTO [Concomitant]
     Active Substance: HERBALS\SAW PALMETTO
  9. BADEL [Concomitant]
  10. COMBIGAN [Concomitant]
     Active Substance: BRIMONIDINE TARTRATE\TIMOLOL MALEATE
  11. TRAVOPROST. [Concomitant]
     Active Substance: TRAVOPROST
  12. CRANBERRY FRUIT [Concomitant]
  13. LUTEN AND BILBERRY [Concomitant]
  14. TAMSULOSIN [Concomitant]
     Active Substance: TAMSULOSIN
  15. METOPROLOL. [Concomitant]
     Active Substance: METOPROLOL
  16. VITAMIN D3 [Concomitant]
     Active Substance: CHOLECALCIFEROL
  17. CIOPIDOGREL BISULFATE [Suspect]
     Active Substance: CLOPIDOGREL BISULFATE
     Indication: CEREBROVASCULAR ACCIDENT
     Dosage: ?          QUANTITY:75 MG MILLIGRAM(S);?
     Route: 048
     Dates: start: 20201212, end: 20201226
  18. PILOCARPINE. [Concomitant]
     Active Substance: PILOCARPINE
  19. MAGNESIUM [Concomitant]
     Active Substance: MAGNESIUM

REACTIONS (6)
  - Confusional state [None]
  - Dyspnoea [None]
  - Diarrhoea [None]
  - Epistaxis [None]
  - Dizziness [None]
  - Somnolence [None]
